FAERS Safety Report 5205617-2 (Version None)
Quarter: 2007Q1

REPORT INFORMATION
  Report Type: 
  Country: None (occurrence: None)
  Receive Date: 20070111
  Receipt Date: 20070105
  Transmission Date: 20070707
  Serious: Yes (Hospitalization)
  Sender: FDA-Public Use
  Company Number: BR-ELI_LILLY_AND_COMPANY-BR200701001459

PATIENT
  Age: 73 Year
  Sex: Male
  Weight: 69 kg

DRUGS (6)
  1. HUMULIN N [Suspect]
     Indication: DIABETES MELLITUS
     Dosage: 12 IU, 2/D
     Route: 058
     Dates: start: 19900101
  2. GLUCOFORMIN [Concomitant]
     Indication: DIABETES MELLITUS
     Dosage: 850 MG, 2/D
     Route: 048
  3. ASPIRIN [Concomitant]
     Indication: CARDIAC DISORDER
     Dosage: 100 MG, DAILY (1/D)
     Route: 048
  4. CARVEDILOL [Concomitant]
     Indication: CARDIAC DISORDER
     Dosage: 12.5 MG, 2/D
     Route: 048
  5. LISINOPRIL [Concomitant]
     Indication: CARDIAC DISORDER
     Dosage: 5 MG, DAILY (1/D)
     Route: 048
  6. SIMVASTATIN [Concomitant]
     Indication: CARDIAC DISORDER
     Dosage: 20 MG, DAILY (1/D)
     Route: 048

REACTIONS (3)
  - CHEST PAIN [None]
  - INJECTION SITE PAIN [None]
  - MYOCARDIAL INFARCTION [None]
